FAERS Safety Report 11824269 (Version 1)
Quarter: 2015Q4

REPORT INFORMATION
  Report Type: Spontaneous
  Country: FR (occurrence: FR)
  Receive Date: 20151210
  Receipt Date: 20151210
  Transmission Date: 20160305
  Serious: Yes (Life-Threatening, Hospitalization)
  Sender: FDA-Public Use
  Company Number: FR-FRESENIUS KABI-FK201506432

PATIENT
  Age: 55 Year
  Sex: Female

DRUGS (3)
  1. SUFENTANIL MYLAN [Suspect]
     Active Substance: SUFENTANIL
     Indication: GASTRECTOMY
     Route: 042
     Dates: start: 20151123
  2. ESMERON [Suspect]
     Active Substance: ROCURONIUM BROMIDE
     Indication: GASTRECTOMY
     Route: 042
     Dates: start: 20151123
  3. PROPOFOL FRESENIUS (NOT SPECIFIED) [Suspect]
     Active Substance: PROPOFOL
     Indication: GASTRECTOMY
     Route: 042
     Dates: start: 20151123

REACTIONS (1)
  - Anaphylactic shock [Recovered/Resolved]

NARRATIVE: CASE EVENT DATE: 20151123
